FAERS Safety Report 15900019 (Version 1)
Quarter: 2019Q1

REPORT INFORMATION
  Report Type: Spontaneous
  Country: US (occurrence: US)
  Receive Date: 20190201
  Receipt Date: 20190201
  Transmission Date: 20190417
  Serious: No
  Sender: FDA-Public Use
  Company Number: US-GLAXOSMITHKLINE-US2019014191

PATIENT
  Age: 47 Year
  Sex: Male

DRUGS (2)
  1. NICODERM CQ [Suspect]
     Active Substance: NICOTINE
     Dosage: 21 MG, 1D
     Route: 062
     Dates: start: 20190119
  2. NICODERM CQ [Suspect]
     Active Substance: NICOTINE
     Indication: SMOKING CESSATION THERAPY
     Dosage: 21 MG, 1D
     Route: 062
     Dates: start: 20190119

REACTIONS (1)
  - Nicotine dependence [Unknown]

NARRATIVE: CASE EVENT DATE: 20190119
